FAERS Safety Report 4411000-X (Version None)
Quarter: 2004Q3

REPORT INFORMATION
  Report Type: 
  Country: None (occurrence: None)
  Receive Date: 20040729
  Receipt Date: 20040709
  Transmission Date: 20050211
  Serious: Yes (Hospitalization)
  Sender: FDA-Public Use
  Company Number: GB-BRISTOL-MYERS SQUIBB COMPANY-12639100

PATIENT
  Age: 35 Year
  Sex: Female
  Weight: 72 kg

DRUGS (4)
  1. VIDEX [Suspect]
     Indication: HIV INFECTION
     Route: 048
     Dates: start: 19990223
  2. ZIDOVUDINE [Concomitant]
     Route: 048
     Dates: start: 20010831
  3. NEVIRAPINE [Concomitant]
     Route: 048
     Dates: start: 19990225
  4. ACYCLOVIR [Concomitant]
     Route: 048
     Dates: start: 20040101

REACTIONS (6)
  - ANAEMIA [None]
  - HAEMATEMESIS [None]
  - LIVER FUNCTION TEST ABNORMAL [None]
  - PORTAL VEIN THROMBOSIS [None]
  - UPPER GASTROINTESTINAL HAEMORRHAGE [None]
  - VARICES OESOPHAGEAL [None]
